FAERS Safety Report 8237530-0 (Version None)
Quarter: 2012Q1

REPORT INFORMATION
  Report Type: 
  Country: None (occurrence: None)
  Receive Date: 20120327
  Receipt Date: 20120321
  Transmission Date: 20120608
  Serious: Yes (Other)
  Sender: FDA-Public Use
  Company Number: PHHY2012MX026083

PATIENT
  Sex: Female

DRUGS (1)
  1. EXFORGE [Suspect]
     Indication: BLOOD PRESSURE FLUCTUATION
     Dosage: 1 DF X (160/10 MG), QD
     Dates: start: 20111001, end: 20120101

REACTIONS (6)
  - THIRST [None]
  - HEPATITIS C [None]
  - INFLUENZA LIKE ILLNESS [None]
  - WEIGHT DECREASED [None]
  - HYPOTENSION [None]
  - NAUSEA [None]
